FAERS Safety Report 25682928 (Version 1)
Quarter: 2025Q3

REPORT INFORMATION
  Report Type: Report from Study
  Country: US (occurrence: US)
  Receive Date: 20250814
  Receipt Date: 20250814
  Transmission Date: 20251020
  Serious: Yes (Hospitalization, Other)
  Sender: GILEAD
  Company Number: US-GILEAD-2025-0724180

PATIENT
  Sex: Female

DRUGS (3)
  1. AZTREONAM LYSINE [Suspect]
     Active Substance: AZTREONAM LYSINE
     Indication: Cystic fibrosis
     Dosage: 75 MG, TID
     Route: 055
  2. PULMOZYME [Concomitant]
     Active Substance: DORNASE ALFA
  3. DUPIXENT [Concomitant]
     Active Substance: DUPILUMAB

REACTIONS (1)
  - Cystic fibrosis [Unknown]
